FAERS Safety Report 6696476-X (Version None)
Quarter: 2010Q2

REPORT INFORMATION
  Report Type: 
  Country: None (occurrence: None)
  Receive Date: 20100421
  Receipt Date: 20100217
  Transmission Date: 20101027
  Serious: No
  Sender: FDA-Public Use
  Company Number: US-000027

PATIENT
  Sex: Female
  Weight: 67.1324 kg

DRUGS (2)
  1. KUVAN [Suspect]
     Indication: PHENYLKETONURIA
     Dosage: (1200 MG QD ORAL), (600 MG QD ORAL), (800 MG QD ORAL)
     Route: 048
     Dates: start: 20060101
  2. NAPROXEN [Concomitant]

REACTIONS (5)
  - ABDOMINAL DISTENSION [None]
  - DECREASED APPETITE [None]
  - FLATULENCE [None]
  - GASTROINTESTINAL SOUNDS ABNORMAL [None]
  - WEIGHT INCREASED [None]
